FAERS Safety Report 21369513 (Version 1)
Quarter: 2022Q3

REPORT INFORMATION
  Report Type: Spontaneous
  Country: US (occurrence: US)
  Receive Date: 20220923
  Receipt Date: 20220923
  Transmission Date: 20221026
  Serious: No
  Sender: FDA-Public Use
  Company Number: US-AIMMUNE THERAPEUTICS, INC.-2022AIMT02404

PATIENT

DRUGS (5)
  1. PALFORZIA [Suspect]
     Active Substance: PEANUT
     Indication: Food allergy
     Dosage: IDE (0.5-6MG), ONCE
     Route: 048
     Dates: start: 20220802, end: 20220802
  2. PALFORZIA [Suspect]
     Active Substance: PEANUT
     Dosage: 3 MG, 1X/DAY
     Route: 048
     Dates: start: 202208, end: 202208
  3. PALFORZIA [Suspect]
     Active Substance: PEANUT
     Dosage: 3 MG, ONCE, LAST DOSE PRIOR TO STOMACH UPSET
     Route: 048
     Dates: start: 202208, end: 202208
  4. PALFORZIA [Suspect]
     Active Substance: PEANUT
     Dosage: 6MG, 1XDAY
     Route: 048
     Dates: start: 202208, end: 20220828
  5. PALFORZIA [Suspect]
     Active Substance: PEANUT
     Dosage: 6MG, ONCE, LAST DOSE PRIOR TO VOMITING
     Route: 048
     Dates: start: 202208, end: 202208

REACTIONS (2)
  - Abdominal discomfort [Recovered/Resolved]
  - Vomiting [Recovered/Resolved]

NARRATIVE: CASE EVENT DATE: 20220802
